FAERS Safety Report 5237290-1 (Version None)
Quarter: 2007Q1

REPORT INFORMATION
  Report Type: 
  Country: None (occurrence: None)
  Receive Date: 20070213
  Receipt Date: 20070206
  Transmission Date: 20070707
  Serious: Yes (Other)
  Sender: FDA-Public Use
  Company Number: US-JNJFOC-20070201894

PATIENT
  Sex: Female
  Weight: 72.58 kg

DRUGS (4)
  1. TOPAMAX [Suspect]
     Indication: FIBROMYALGIA
  2. PAXIL [Concomitant]
     Indication: FIBROMYALGIA
  3. DIOVAN [Concomitant]
     Indication: BLOOD PRESSURE
  4. NEXIUM [Concomitant]
     Indication: GASTROOESOPHAGEAL REFLUX DISEASE

REACTIONS (2)
  - EYE PAIN [None]
  - RETINAL VEIN OCCLUSION [None]
